FAERS Safety Report 12973307 (Version 2)
Quarter: 2017Q1

REPORT INFORMATION
  Report Type: Report from Study
  Country: US (occurrence: US)
  Receive Date: 20161124
  Receipt Date: 20170207
  Transmission Date: 20170428
  Serious: Yes (Other)
  Sender: FDA-Public Use
  Company Number: US-009507513-1611USA010813

PATIENT
  Sex: Female

DRUGS (2)
  1. PEMBROLIZUMAB. [Suspect]
     Active Substance: PEMBROLIZUMAB
     Dosage: EVERY THREE WEEKS
     Route: 042
     Dates: start: 20161109
  2. PEMBROLIZUMAB. [Suspect]
     Active Substance: PEMBROLIZUMAB
     Indication: SQUAMOUS CELL CARCINOMA OF HEAD AND NECK
     Dosage: EVERY THREE WEEKS
     Route: 042

REACTIONS (8)
  - Swollen tongue [Recovered/Resolved]
  - Malignant neoplasm progression [Unknown]
  - Productive cough [Not Recovered/Not Resolved]
  - Nausea [Unknown]
  - Pneumonia [Recovered/Resolved]
  - Somnolence [Unknown]
  - Fatigue [Unknown]
  - Rash [Not Recovered/Not Resolved]
